FAERS Safety Report 4597379-7 (Version None)
Quarter: 2005Q1

REPORT INFORMATION
  Report Type: 
  Country: None (occurrence: None)
  Receive Date: 20050303
  Receipt Date: 20041021
  Transmission Date: 20050727
  Serious: Yes (Other)
  Sender: FDA-Public Use
  Company Number: US-GLAXOSMITHKLINE-A0530788A

PATIENT
  Age: 67 Year
  Sex: Male

DRUGS (7)
  1. REQUIP [Suspect]
     Indication: PARKINSON'S DISEASE
     Route: 048
     Dates: start: 20041013, end: 20041013
  2. ZESTRIL [Concomitant]
  3. TOPROL-XL [Concomitant]
  4. NIFEDIPINE [Concomitant]
  5. BACLOFEN [Concomitant]
  6. ASPIRIN [Concomitant]
  7. CHLORPROMAZINE [Concomitant]

REACTIONS (3)
  - DELIRIUM [None]
  - PRE-EXISTING CONDITION IMPROVED [None]
  - THERAPEUTIC RESPONSE UNEXPECTED [None]
